FAERS Safety Report 8487454 (Version 4)
Quarter: 2014Q2

REPORT INFORMATION
  Report Type: Report from Study
  Country: GB (occurrence: GB)
  Receive Date: 20120402
  Receipt Date: 20140407
  Transmission Date: 20141212
  Serious: Yes (Death)
  Sender: FDA-Public Use
  Company Number: GB-EISAI INC-E7389-02235-CLI-GB

PATIENT
  Age: 45 Year
  Sex: Female
  Weight: 70 kg

DRUGS (2)
  1. ERIBULIN [Suspect]
     Indication: BREAST CANCER
     Route: 041
     Dates: start: 20120222, end: 20120321
  2. CAPECITABINE [Suspect]
     Indication: BREAST CANCER
     Route: 048
     Dates: start: 20120222, end: 2012

REACTIONS (1)
  - Pulmonary embolism [Fatal]
